FAERS Safety Report 6042490-7 (Version None)
Quarter: 2009Q1

REPORT INFORMATION
  Report Type: 
  Country: None (occurrence: None)
  Receive Date: 20090116
  Receipt Date: 20090113
  Transmission Date: 20090719
  Serious: Yes (Death)
  Sender: FDA-Public Use
  Company Number: US-GILEAD-2009-0019818

PATIENT
  Sex: Female
  Weight: 113.5 kg

DRUGS (22)
  1. LETAIRIS [Suspect]
     Indication: PULMONARY ARTERIAL HYPERTENSION
     Route: 048
     Dates: start: 20080609
  2. COREG [Concomitant]
  3. BIDIL [Concomitant]
  4. LASIX [Concomitant]
  5. OXYGEN [Concomitant]
  6. THEOPHYLLINE [Concomitant]
  7. ALBUTEROL [Concomitant]
  8. SEREVENT [Concomitant]
  9. ATROVENT [Concomitant]
  10. RHINOCORT [Concomitant]
  11. ZITHROMAX [Concomitant]
  12. NOVOLIN 70/30 [Concomitant]
  13. NOVOLIN R [Concomitant]
  14. AMBIEN [Concomitant]
  15. DIFLUCAN [Concomitant]
  16. NYSTATIN [Concomitant]
  17. MOTRIN [Concomitant]
  18. DICYCLOMINE [Concomitant]
  19. EPIPEN [Concomitant]
  20. ACCOLATE [Concomitant]
  21. FLEXERIL [Concomitant]
  22. VALIUM [Concomitant]

REACTIONS (1)
  - DEATH [None]
